FAERS Safety Report 6044403-0 (Version None)
Quarter: 2009Q1

REPORT INFORMATION
  Report Type: 
  Country: None (occurrence: None)
  Receive Date: 20090115
  Receipt Date: 20090115
  Transmission Date: 20090719
  Serious: Yes (Hospitalization)
  Sender: FDA-Public Use
  Company Number: None

PATIENT
  Sex: Female
  Weight: 56 kg

DRUGS (2)
  1. FLUOROURACIL [Suspect]
     Dosage: 1000 MG
  2. MITOMYCIN [Suspect]
     Dosage: 10 MG

REACTIONS (2)
  - DIARRHOEA [None]
  - SMALL INTESTINAL OBSTRUCTION [None]
